FAERS Safety Report 19171975 (Version 2)
Quarter: 2021Q2

REPORT INFORMATION
  Report Type: Report from Study
  Country: None (occurrence: TR)
  Receive Date: 20210423
  Receipt Date: 20210505
  Transmission Date: 20210717
  Serious: Yes (Death, Hospitalization, Other)
  Sender: FDA-Public Use
  Company Number: TR-ABBVIE-21K-161-3868349-00

PATIENT
  Age: 84 Year
  Sex: Male

DRUGS (32)
  1. PHENYLALANINE [Concomitant]
     Active Substance: PHENYLALANINE
     Indication: PRODUCT USED FOR UNKNOWN INDICATION
  2. SERINE. [Concomitant]
     Active Substance: SERINE
     Indication: PRODUCT USED FOR UNKNOWN INDICATION
  3. VALINE [Concomitant]
     Active Substance: VALINE
     Indication: PRODUCT USED FOR UNKNOWN INDICATION
  4. POTASSIUM CHLORIDE. [Concomitant]
     Active Substance: POTASSIUM CHLORIDE
     Indication: PRODUCT USED FOR UNKNOWN INDICATION
  5. SODIUM ACETATE. [Concomitant]
     Active Substance: SODIUM ACETATE
     Indication: PRODUCT USED FOR UNKNOWN INDICATION
  6. GLUCOSE ANHYDRATE [Concomitant]
     Indication: PRODUCT USED FOR UNKNOWN INDICATION
  7. MAGNESIUM SULFATE. [Concomitant]
     Active Substance: MAGNESIUM SULFATE
     Indication: PRODUCT USED FOR UNKNOWN INDICATION
  8. ISOLEUCINE [Concomitant]
     Active Substance: ISOLEUCINE
     Indication: PRODUCT USED FOR UNKNOWN INDICATION
  9. PROLINE [Concomitant]
     Active Substance: PROLINE
     Indication: PRODUCT USED FOR UNKNOWN INDICATION
  10. CALCIUM CHLORIDE. [Concomitant]
     Active Substance: CALCIUM CHLORIDE
     Indication: PRODUCT USED FOR UNKNOWN INDICATION
  11. MAGNESIUM SULPHATE HEPTAHYDRATE [Concomitant]
     Indication: PRODUCT USED FOR UNKNOWN INDICATION
  12. GLUTAMIC ACID [Concomitant]
     Active Substance: GLUTAMIC ACID
     Indication: PRODUCT USED FOR UNKNOWN INDICATION
  13. GLYCINE. [Concomitant]
     Active Substance: GLYCINE
     Indication: PRODUCT USED FOR UNKNOWN INDICATION
  14. LYSINE HYDROCHLORIDE [Concomitant]
     Active Substance: LYSINE HYDROCHLORIDE
     Indication: PRODUCT USED FOR UNKNOWN INDICATION
  15. THREONINE [Concomitant]
     Active Substance: THREONINE
     Indication: PRODUCT USED FOR UNKNOWN INDICATION
  16. TRYPTOPHAN [Concomitant]
     Active Substance: TRYPTOPHAN
     Indication: PRODUCT USED FOR UNKNOWN INDICATION
  17. POTASSIUM [Concomitant]
     Active Substance: POTASSIUM
     Indication: PRODUCT USED FOR UNKNOWN INDICATION
  18. METHIONINE [Concomitant]
     Active Substance: METHIONINE
     Indication: PRODUCT USED FOR UNKNOWN INDICATION
  19. MAGNESIUM [Concomitant]
     Active Substance: MAGNESIUM
     Indication: PRODUCT USED FOR UNKNOWN INDICATION
  20. DUODOPA [Suspect]
     Active Substance: CARBIDOPA\LEVODOPA
     Indication: PARKINSON^S DISEASE
     Dosage: MD (ML): 8.50 CD (ML): 3.90 ED (ML): 1.00
     Route: 050
     Dates: start: 20210323, end: 20210420
  21. ALANINE [Concomitant]
     Active Substance: ALANINE
     Indication: PRODUCT USED FOR UNKNOWN INDICATION
  22. ARGININE [Concomitant]
     Active Substance: ARGININE
     Indication: PRODUCT USED FOR UNKNOWN INDICATION
  23. ASPARTIC ACID [Concomitant]
     Active Substance: ASPARTIC ACID
     Indication: PRODUCT USED FOR UNKNOWN INDICATION
  24. HISTIDINE [Concomitant]
     Active Substance: HISTIDINE
     Indication: PRODUCT USED FOR UNKNOWN INDICATION
  25. LEUCINE [Concomitant]
     Active Substance: LEUCINE
     Indication: PRODUCT USED FOR UNKNOWN INDICATION
  26. DUODOPA [Suspect]
     Active Substance: CARBIDOPA\LEVODOPA
     Dosage: MD(ML): 8.50 CD(ML): 4.10 ED (ML): 1.00
     Route: 050
     Dates: start: 20210420
  27. LYSINE [Concomitant]
     Active Substance: LYSINE
     Indication: PRODUCT USED FOR UNKNOWN INDICATION
  28. TYROSINE [Concomitant]
     Active Substance: TYROSINE
     Indication: PRODUCT USED FOR UNKNOWN INDICATION
  29. KABIVEN [Concomitant]
     Active Substance: AMINO ACIDS\ANHYDROUS DEXTROSE\CALCIUM CHLORIDE\MAGNESIUM SULFATE HEPTAHYDRATE\POTASSIUM CHLORIDE\SODIUM ACETATE\SODIUM GLYCEROPHOSPHATE ANHYDROUS\SOYBEAN OIL
     Indication: HYPOPHAGIA
     Route: 042
     Dates: start: 20210419
  30. SODIUM [Concomitant]
     Active Substance: SODIUM
     Indication: PRODUCT USED FOR UNKNOWN INDICATION
  31. GLUCOSE MONOHYDRATE [Concomitant]
     Active Substance: DEXTROSE MONOHYDRATE
     Indication: PRODUCT USED FOR UNKNOWN INDICATION
  32. SODIUM GLYCEROPHOSPHATE [Concomitant]
     Active Substance: SODIUM GLYCEROPHOSPHATE
     Indication: PRODUCT USED FOR UNKNOWN INDICATION

REACTIONS (5)
  - Epilepsy [Unknown]
  - Pneumonia [Fatal]
  - Blood sodium decreased [Unknown]
  - C-reactive protein increased [Unknown]
  - Hypophagia [Unknown]

NARRATIVE: CASE EVENT DATE: 20210419
